FAERS Safety Report 7029531-5 (Version None)
Quarter: 2010Q3

REPORT INFORMATION
  Report Type: 
  Country: None (occurrence: None)
  Receive Date: 20100930
  Receipt Date: 20100914
  Transmission Date: 20110219
  Serious: Yes (Hospitalization)
  Sender: FDA-Public Use
  Company Number: 2010003910

PATIENT
  Age: 83 Year
  Sex: Male

DRUGS (11)
  1. ERLOTINIB HYDROCHLORIDE [Suspect]
     Indication: LUNG ADENOCARCINOMA
     Dosage: ORAL
     Route: 048
     Dates: start: 20100108, end: 20100624
  2. BEVACIZUMAB [Suspect]
     Indication: LUNG ADENOCARCINOMA
     Dosage: (975 MG, Q3W), INTRAVENOUS
     Route: 042
     Dates: start: 20100108
  3. CARDURA [Suspect]
  4. LEXAPRO [Suspect]
  5. DULCOLAX [Suspect]
  6. IBUPROFEN [Suspect]
  7. NOVOLOG [Suspect]
  8. SALMETEROL (SALMETEROL) [Suspect]
  9. SIMVASTATIN [Suspect]
  10. ACETAMINOPHEN [Suspect]
  11. ZOFRAN [Suspect]

REACTIONS (3)
  - APHASIA [None]
  - DRUG TOXICITY [None]
  - SPEECH DISORDER [None]
